FAERS Safety Report 23315153 (Version 4)
Quarter: 2025Q1

REPORT INFORMATION
  Report Type: Spontaneous
  Country: US (occurrence: US)
  Receive Date: 20231219
  Receipt Date: 20250304
  Transmission Date: 20250409
  Serious: No
  Sender: PFIZER
  Company Number: US-PFIZER INC-PV202300176266

PATIENT
  Age: 78 Year
  Sex: Male
  Weight: 90.703 kg

DRUGS (6)
  1. MEKTOVI [Suspect]
     Active Substance: BINIMETINIB
     Indication: Malignant melanoma
  2. MEKTOVI [Suspect]
     Active Substance: BINIMETINIB
     Dosage: 60 MG (4 TABLETS OF 15 MG), DAILY
     Dates: start: 202305
  3. MEKTOVI [Suspect]
     Active Substance: BINIMETINIB
     Dosage: 2 TABLETS (30 MG) EVERY 12 HOURS
     Route: 048
  4. BRAFTOVI [Concomitant]
     Active Substance: ENCORAFENIB
     Dates: start: 202305
  5. BRAFTOVI [Concomitant]
     Active Substance: ENCORAFENIB
     Dosage: 225 MG (3 CAPSULES OF 75 MG), DAILY (EVERY DAY)
     Route: 048
  6. HYDROCORTISONE [Concomitant]
     Active Substance: HYDROCORTISONE
     Dates: start: 202305

REACTIONS (4)
  - Pruritus [Recovered/Resolved]
  - Skin irritation [Recovered/Resolved]
  - Fatigue [Unknown]
  - Dyspnoea [Unknown]

NARRATIVE: CASE EVENT DATE: 20231025
